FAERS Safety Report 8005208-4 (Version None)
Quarter: 2011Q4

REPORT INFORMATION
  Report Type: 
  Country: None (occurrence: None)
  Receive Date: 20111223
  Receipt Date: 20111220
  Transmission Date: 20120403
  Serious: Yes (Death)
  Sender: FDA-Public Use
  Company Number: PHHY2011CA110940

PATIENT
  Sex: Female

DRUGS (1)
  1. SANDOSTATIN LAR [Suspect]
     Indication: SMALL INTESTINAL RESECTION
     Dosage: 20 MG, QMO
     Route: 030
     Dates: start: 20080822

REACTIONS (1)
  - DEATH [None]
